FAERS Safety Report 7568639-2 (Version None)
Quarter: 2011Q2

REPORT INFORMATION
  Report Type: 
  Country: None (occurrence: None)
  Receive Date: 20110623
  Receipt Date: 20110620
  Transmission Date: 20111010
  Serious: No
  Sender: FDA-Public Use
  Company Number: US-TEVA-287472USA

PATIENT
  Sex: Female
  Weight: 93.07 kg

DRUGS (3)
  1. SYNTHROID [Concomitant]
     Indication: HYPOTHYROIDISM
  2. ALBUTEROL SULFATE AUTOHALER [Concomitant]
     Indication: WHEEZING
  3. PLAN B ONE-STEP [Suspect]
     Indication: POST COITAL CONTRACEPTION
     Dosage: 1.5 MILLIGRAM;
     Route: 048
     Dates: start: 20110606, end: 20110606

REACTIONS (3)
  - ABDOMINAL DISTENSION [None]
  - VAGINAL DISCHARGE [None]
  - MENSTRUATION IRREGULAR [None]
